FAERS Safety Report 25467197 (Version 3)
Quarter: 2025Q3

REPORT INFORMATION
  Report Type: Report from Study
  Country: KR (occurrence: KR)
  Receive Date: 20250623
  Receipt Date: 20250727
  Transmission Date: 20251020
  Serious: Yes (Hospitalization, Other)
  Sender: TAKEDA
  Company Number: KR-TAKEDA-2025TUS056426

PATIENT
  Age: 60 Year
  Sex: Female
  Weight: 49.6 kg

DRUGS (17)
  1. MARIBAVIR [Suspect]
     Active Substance: MARIBAVIR
     Indication: Cytomegalovirus infection
     Dosage: 400 MILLIGRAM, BID
     Dates: start: 20250326, end: 20250423
  2. TACROLIMUS [Concomitant]
     Active Substance: TACROLIMUS
     Indication: Prophylaxis
     Dosage: 0.25 MILLIGRAM, BID
     Dates: start: 20250222, end: 20250306
  3. TACROLIMUS [Concomitant]
     Active Substance: TACROLIMUS
     Dosage: 0.25 MILLIGRAM, BID
     Dates: start: 20250307, end: 20250319
  4. SULFAMETHOXAZOLE\TRIMETHOPRIM [Concomitant]
     Active Substance: SULFAMETHOXAZOLE\TRIMETHOPRIM
     Indication: Prophylaxis
  5. PANTOPRAZOLE SODIUM [Concomitant]
     Active Substance: PANTOPRAZOLE SODIUM
     Indication: Enterocolitis
     Dosage: 40 MILLIGRAM, QD
     Dates: start: 20250325, end: 20250401
  6. ACETYLCYSTEINE [Concomitant]
     Active Substance: ACETYLCYSTEINE
     Indication: Pneumonia
     Dosage: 600 MILLIGRAM, TID
     Dates: start: 20250325, end: 20250401
  7. MAXIPIME [Concomitant]
     Active Substance: CEFEPIME HYDROCHLORIDE
     Indication: Enterocolitis
     Dosage: 2 GRAM, BID
     Dates: start: 20250325, end: 20250330
  8. ORNITHINE ASPARTATE [Concomitant]
     Active Substance: ORNITHINE ASPARTATE
     Indication: Prophylaxis
     Dosage: 2000 MILLIGRAM, QD
     Dates: start: 20250325, end: 20250327
  9. ALBUMIN HUMAN [Concomitant]
     Active Substance: ALBUMIN HUMAN
     Indication: Prophylaxis
     Dosage: 100 MILLILITER, QD
     Dates: start: 20250326, end: 20250327
  10. Vancozin [Concomitant]
     Indication: Enterocolitis
     Dosage: 125 MILLIGRAM, QID
     Dates: start: 20250329, end: 20250411
  11. Fotagel [Concomitant]
     Indication: Enterocolitis
     Dosage: 20 MILLILITER, TID
     Dates: start: 20250329, end: 20250404
  12. Ramnos [Concomitant]
     Indication: Enterocolitis
     Dosage: 250 MILLIGRAM, TID
     Dates: start: 20250331, end: 20250401
  13. Roxol [Concomitant]
     Indication: Pneumonia acinetobacter
     Dosage: 30 MILLIGRAM, TID
     Dates: start: 20250402, end: 20250417
  14. Mytonin [Concomitant]
     Indication: Prophylaxis
     Dosage: 25 UNK, TID
     Dates: start: 20250403, end: 20250417
  15. LEVOFLOXACIN [Concomitant]
     Active Substance: LEVOFLOXACIN
     Indication: Enterocolitis
     Dosage: 500 MILLIGRAM, QD
     Dates: start: 20250411, end: 20250417
  16. LINAGLIPTIN\METFORMIN HYDROCHLORIDE [Concomitant]
     Active Substance: LINAGLIPTIN\METFORMIN HYDROCHLORIDE
     Indication: Diabetes mellitus
     Dosage: UNK UNK, QD
     Dates: start: 20250406
  17. CHOLINE ALFOSCERATE [Concomitant]
     Active Substance: CHOLINE ALFOSCERATE
     Indication: Prophylaxis
     Dosage: 400 MILLIGRAM, QD
     Dates: start: 20250417, end: 20250605

REACTIONS (3)
  - Cytomegalovirus viraemia [Not Recovered/Not Resolved]
  - Clostridium difficile colitis [Recovered/Resolved]
  - Septic shock [Recovered/Resolved]

NARRATIVE: CASE EVENT DATE: 20250519
